FAERS Safety Report 7107844-6 (Version None)
Quarter: 2010Q4

REPORT INFORMATION
  Report Type: 
  Country: None (occurrence: None)
  Receive Date: 20101117
  Receipt Date: 20101108
  Transmission Date: 20110411
  Serious: Yes (Hospitalization, Other)
  Sender: FDA-Public Use
  Company Number: US-BAYER-201014473NA

PATIENT
  Age: 29 Year
  Sex: Female
  Weight: 58 kg

DRUGS (8)
  1. YASMIN [Suspect]
     Indication: ORAL CONTRACEPTION
     Dosage: AS USED DOSE: UNK
     Route: 048
     Dates: start: 20020801, end: 20080201
  2. FISH OIL [Concomitant]
     Dates: start: 20071001, end: 20080401
  3. NAPROXEN [Concomitant]
     Dates: start: 20040401, end: 20041201
  4. IMETREX [Concomitant]
     Dates: start: 20050301, end: 20060101
  5. RELPAX [Concomitant]
     Dates: start: 20060201
  6. VERAPAMIL [Concomitant]
     Dates: start: 20050501
  7. TRAMADOL HCL [Concomitant]
  8. ASTELIN [Concomitant]

REACTIONS (8)
  - ATELECTASIS [None]
  - DEEP VEIN THROMBOSIS [None]
  - DYSPNOEA [None]
  - HEART RATE IRREGULAR [None]
  - OEDEMA PERIPHERAL [None]
  - PAIN IN EXTREMITY [None]
  - PULMONARY EMBOLISM [None]
  - SYNCOPE [None]
